FAERS Safety Report 6119844-3 (Version None)
Quarter: 2009Q1

REPORT INFORMATION
  Report Type: 
  Country: None (occurrence: None)
  Receive Date: 20090316
  Receipt Date: 20090302
  Transmission Date: 20090719
  Serious: Yes (Other)
  Sender: FDA-Public Use
  Company Number: US-PFIZER INC-2009175142

PATIENT
  Sex: Female

DRUGS (2)
  1. XANAX [Suspect]
     Indication: ANXIETY
  2. ALL OTHER THERAPEUTIC PRODUCTS [Concomitant]
     Dosage: UNK

REACTIONS (3)
  - BODY HEIGHT DECREASED [None]
  - FALL [None]
  - WEIGHT DECREASED [None]
